FAERS Safety Report 21958897 (Version 1)
Quarter: 2023Q1

REPORT INFORMATION
  Report Type: Spontaneous
  Country: US (occurrence: US)
  Receive Date: 20230206
  Receipt Date: 20230206
  Transmission Date: 20230417
  Serious: No
  Sender: FDA-Public Use
  Company Number: US-AERIE-2022-002971

PATIENT
  Age: 50 Year
  Sex: Male

DRUGS (1)
  1. RHOPRESSA [Suspect]
     Active Substance: NETARSUDIL MESYLATE
     Indication: Normal tension glaucoma
     Dosage: 1 GTT, OU, QHS
     Route: 047

REACTIONS (2)
  - Dacryostenosis acquired [Recovered/Resolved]
  - Off label use [Unknown]
